FAERS Safety Report 6975080-X (Version None)
Quarter: 2010Q3

REPORT INFORMATION
  Report Type: 
  Country: None (occurrence: None)
  Receive Date: 20100910
  Receipt Date: 20090128
  Transmission Date: 20110219
  Serious: No
  Sender: FDA-Public Use
  Company Number: US-WYE-H07972709

PATIENT
  Age: 62 Year
  Sex: Male
  Weight: 99.88 kg

DRUGS (5)
  1. PRISTIQ [Suspect]
     Indication: MAJOR DEPRESSION
     Route: 048
     Dates: start: 20081201
  2. SIMVASTATIN [Concomitant]
  3. LISINOPRIL AND HYDROCHLOROTHIAZIDE [Concomitant]
  4. CENTRUM SILVER [Suspect]
     Dosage: UNKNOWN
     Dates: start: 20090101
  5. CYANOCOBALAMIN [Suspect]
     Dosage: UNKNOWN
     Dates: start: 20090124

REACTIONS (3)
  - ABDOMINAL DISCOMFORT [None]
  - ABDOMINAL PAIN [None]
  - DIARRHOEA [None]
